FAERS Safety Report 14632902 (Version 1)
Quarter: 2018Q1

REPORT INFORMATION
  Report Type: Spontaneous
  Country: US (occurrence: US)
  Receive Date: 20180313
  Receipt Date: 20180313
  Transmission Date: 20180509
  Serious: No
  Sender: FDA-Public Use
  Company Number: US-SUNOVION-2018SUN000763

PATIENT
  Sex: Female

DRUGS (4)
  1. ANORO ELLIPTA [Interacting]
     Active Substance: UMECLIDINIUM BROMIDE\VILANTEROL TRIFENATATE
     Dosage: UNK
  2. PROGESTERONE. [Concomitant]
     Active Substance: PROGESTERONE
     Dosage: UNK
  3. LATUDA [Suspect]
     Active Substance: LURASIDONE HYDROCHLORIDE
     Dosage: 15 MG, QD (ONE QUARTER OF A 60 MILLIGRAMS TABLET WITH FOOD PER DAY)
     Route: 048
  4. LITHIUM. [Concomitant]
     Active Substance: LITHIUM
     Dosage: UNK

REACTIONS (5)
  - Peripheral swelling [Unknown]
  - Drug interaction [Unknown]
  - Pollakiuria [Unknown]
  - Insomnia [Unknown]
  - Chromaturia [Unknown]
